FAERS Safety Report 15006845 (Version 1)
Quarter: 2018Q2

REPORT INFORMATION
  Report Type: Spontaneous
  Country: US (occurrence: US)
  Receive Date: 20180613
  Receipt Date: 20180613
  Transmission Date: 20180711
  Serious: No
  Sender: FDA-Public Use
  Company Number: US-BAYER-2018-099511

PATIENT
  Age: 74 Year
  Sex: Male
  Weight: 64 kg

DRUGS (2)
  1. MIRALAX [Suspect]
     Active Substance: POLYETHYLENE GLYCOL 3350
     Indication: COLONOSCOPY
     Dosage: UNK UNK, QD
     Route: 048
  2. CHOLESTEROL [Concomitant]
     Active Substance: CHOLESTEROL
     Dosage: UNK

REACTIONS (5)
  - Nausea [Unknown]
  - Vomiting [Unknown]
  - Off label use [Unknown]
  - Product use in unapproved indication [Unknown]
  - Circumstance or information capable of leading to medication error [Unknown]
